FAERS Safety Report 4366227-2 (Version None)
Quarter: 2004Q2

REPORT INFORMATION
  Report Type: 
  Country: None (occurrence: None)
  Receive Date: 20040527
  Receipt Date: 20040421
  Transmission Date: 20050107
  Serious: No
  Sender: FDA-Public Use
  Company Number: US-BRISTOL-MYERS SQUIBB COMPANY-12567244

PATIENT
  Age: 67 Year
  Sex: Male
  Weight: 113 kg

DRUGS (1)
  1. DEFINITY [Suspect]
     Dosage: DOSE VALUE:  .4 CC, AND THEN .3 CC FOLLOWED BY SALINE FLUSHES.
     Route: 040
     Dates: start: 20040420, end: 20040420

REACTIONS (1)
  - BACK PAIN [None]
